FAERS Safety Report 10927309 (Version 2)
Quarter: 2016Q2

REPORT INFORMATION
  Report Type: Spontaneous
  Country: CA (occurrence: CA)
  Receive Date: 20150318
  Receipt Date: 20160606
  Transmission Date: 20160815
  Serious: Yes (Hospitalization)
  Sender: FDA-Public Use
  Company Number: CA-ACTELION-A-NJ2015-114496

PATIENT
  Age: 59 Year
  Sex: Male
  Weight: 26.76 kg

DRUGS (4)
  1. TRACLEER [Suspect]
     Active Substance: BOSENTAN
     Indication: PULMONARY ARTERIAL HYPERTENSION
     Route: 048
  2. PANTOLOC [Concomitant]
     Active Substance: PANTOPRAZOLE SODIUM
  3. CARIPUL [Suspect]
     Active Substance: EPOPROSTENOL
     Indication: PULMONARY ARTERIAL HYPERTENSION
     Dosage: 3 MG, QD
     Route: 042
  4. WARFARIN [Concomitant]
     Active Substance: WARFARIN

REACTIONS (5)
  - Intentional device misuse [Recovered/Resolved]
  - Hemiparesis [Unknown]
  - Complication associated with device [Unknown]
  - Asthenia [Unknown]
  - Cerebrovascular accident [Unknown]

NARRATIVE: CASE EVENT DATE: 20150304
